FAERS Safety Report 4526670-5 (Version None)
Quarter: 2004Q4

REPORT INFORMATION
  Report Type: 
  Country: None (occurrence: None)
  Receive Date: 20041214
  Receipt Date: 20041207
  Transmission Date: 20050328
  Serious: Yes (Other)
  Sender: FDA-Public Use
  Company Number: FR-GLAXOSMITHKLINE-B0359394A

PATIENT
  Age: 78 Year
  Sex: Male

DRUGS (1)
  1. VENTOLIN [Suspect]
     Indication: PULMONARY FUNCTION TEST
     Dosage: 2PUFF PER DAY
     Route: 055
     Dates: start: 20041206, end: 20041206

REACTIONS (5)
  - BRONCHOSPASM [None]
  - ERYTHEMA [None]
  - PYREXIA [None]
  - RESPIRATORY DISTRESS [None]
  - TREMOR [None]
